FAERS Safety Report 9314068 (Version 1)
Quarter: 2013Q2

REPORT INFORMATION
  Report Type: Spontaneous
  Country: US (occurrence: None)
  Receive Date: 20130524
  Receipt Date: 20130524
  Transmission Date: 20140414
  Serious: Yes (Hospitalization)
  Sender: FDA-Public Use
  Company Number: None

PATIENT
  Age: 70 Year
  Sex: Male
  Weight: 74.5 kg

DRUGS (2)
  1. AMANTADINE [Suspect]
     Route: 048
     Dates: start: 20120522, end: 20130325
  2. MORPHINE [Suspect]
     Indication: PAIN
     Route: 048
     Dates: end: 20130326

REACTIONS (3)
  - Mental status changes [None]
  - Hallucination [None]
  - Confusional state [None]
